FAERS Safety Report 19792820 (Version 1)
Quarter: 2021Q3

REPORT INFORMATION
  Report Type: Spontaneous
  Country: US (occurrence: US)
  Receive Date: 20210906
  Receipt Date: 20210906
  Transmission Date: 20211014
  Serious: Yes (Other)
  Sender: FDA-Public Use
  Company Number: US-GW PHARMA-202108USGW04236

PATIENT

DRUGS (2)
  1. VIGABATRIN. [Suspect]
     Active Substance: VIGABATRIN
     Indication: PRODUCT USED FOR UNKNOWN INDICATION
     Dosage: UNK
     Route: 065
  2. EPIDIOLEX [Suspect]
     Active Substance: CANNABIDIOL
     Indication: INFANTILE SPASMS
     Dosage: 18.75 MG/KG/DAY, 300 MILLIGRAM, BID
     Route: 048
     Dates: start: 202007

REACTIONS (2)
  - Product use in unapproved indication [Unknown]
  - Seizure [Unknown]
